FAERS Safety Report 4935227-3 (Version None)
Quarter: 2006Q1

REPORT INFORMATION
  Report Type: 
  Country: None (occurrence: None)
  Receive Date: 20060302
  Receipt Date: 20060207
  Transmission Date: 20060701
  Serious: Yes (Other)
  Sender: FDA-Public Use
  Company Number: US200602001702

PATIENT
  Age: 78 Year
  Sex: Female

DRUGS (1)
  1. HUMULIN N [Suspect]
     Indication: DIABETES MELLITUS
     Dosage: SEE IMAGE

REACTIONS (7)
  - ARTHROSCOPIC SURGERY [None]
  - BLOOD GLUCOSE DECREASED [None]
  - BODY TEMPERATURE DECREASED [None]
  - DEPRESSION [None]
  - FEELING ABNORMAL [None]
  - NON-HODGKIN'S LYMPHOMA [None]
  - TREMOR [None]
